FAERS Safety Report 17354643 (Version 1)
Quarter: 2020Q1

REPORT INFORMATION
  Report Type: Spontaneous
  Country: US (occurrence: US)
  Receive Date: 20200131
  Receipt Date: 20200131
  Transmission Date: 20200409
  Serious: No
  Sender: FDA-Public Use
  Company Number: US-SUNOVION-2020SUN000246

PATIENT
  Age: 71 Year
  Sex: Female

DRUGS (2)
  1. BUDESONIDE. [Concomitant]
     Active Substance: BUDESONIDE
  2. BROVANA [Suspect]
     Active Substance: ARFORMOTEROL TARTRATE
     Dosage: 15MCG 2ML
     Route: 055
     Dates: end: 202001

REACTIONS (4)
  - Pain [Unknown]
  - Malaise [Unknown]
  - Therapy cessation [Unknown]
  - Chest discomfort [Unknown]
